FAERS Safety Report 12753433 (Version 1)
Quarter: 2016Q3

REPORT INFORMATION
  Report Type: Spontaneous
  Country: US (occurrence: US)
  Receive Date: 20160915
  Receipt Date: 20160915
  Transmission Date: 20161109
  Serious: No
  Sender: FDA-Public Use
  Company Number: US-ASTELLAS-2015US042149

PATIENT
  Age: 73 Year
  Sex: Male

DRUGS (1)
  1. XTANDI [Suspect]
     Active Substance: ENZALUTAMIDE
     Indication: HORMONE-REFRACTORY PROSTATE CANCER
     Route: 065
     Dates: start: 201509, end: 201511

REACTIONS (7)
  - Prostatic specific antigen increased [Unknown]
  - Abdominal pain upper [Unknown]
  - Constipation [Unknown]
  - Eye discharge [Unknown]
  - Malaise [Unknown]
  - Eye infection [Unknown]
  - Vomiting [Unknown]

NARRATIVE: CASE EVENT DATE: 20151108
